FAERS Safety Report 8427759-0 (Version None)
Quarter: 2012Q2

REPORT INFORMATION
  Report Type: 
  Country: None (occurrence: None)
  Receive Date: 20120611
  Receipt Date: 20120507
  Transmission Date: 20120825
  Serious: Yes (Life-Threatening, Hospitalization, Other)
  Sender: FDA-Public Use
  Company Number: FR-ASTRAZENECA-2012SE22839

PATIENT
  Age: 702 Month
  Sex: Female

DRUGS (17)
  1. ACTONEL [Suspect]
     Route: 065
     Dates: start: 20100101, end: 20120315
  2. METHOTREXATE SODIUM [Suspect]
     Indication: RHEUMATOID ARTHRITIS
     Route: 058
     Dates: start: 19970101, end: 20120315
  3. FELODIPINE [Concomitant]
  4. ZOLPIDEM [Concomitant]
  5. NEXIUM [Suspect]
     Route: 048
     Dates: start: 20100101, end: 20120315
  6. AMITRIPTYLINE HCL [Suspect]
     Indication: DEPRESSION
     Route: 065
     Dates: end: 20120303
  7. MABTHERA [Suspect]
     Indication: RHEUMATOID ARTHRITIS
     Route: 065
     Dates: start: 20101001, end: 20111001
  8. ESCITALOPRAM [Concomitant]
     Indication: DEPRESSION
     Dates: start: 20120302, end: 20120303
  9. VALSARTAN [Concomitant]
  10. XANAX [Concomitant]
     Dates: start: 20120317
  11. PREDNISONE TAB [Concomitant]
  12. ENBREL [Suspect]
     Indication: RHEUMATOID ARTHRITIS
     Route: 058
     Dates: start: 20111018, end: 20120303
  13. FOLIC ACID [Concomitant]
  14. VOLTAREN [Concomitant]
  15. LYRICA [Suspect]
     Indication: PAIN
     Route: 048
     Dates: start: 20100101, end: 20120315
  16. ACETAMINOPHEN [Concomitant]
  17. SULFARLEM [Concomitant]

REACTIONS (9)
  - HEADACHE [None]
  - AGITATION [None]
  - AGRANULOCYTOSIS [None]
  - ASTHENIA [None]
  - SUICIDE ATTEMPT [None]
  - OEDEMA PERIPHERAL [None]
  - CHILLS [None]
  - PAIN [None]
  - DEPRESSION [None]
